FAERS Safety Report 9846852 (Version 2)
Quarter: 2014Q2

REPORT INFORMATION
  Report Type: Spontaneous
  Country: FR (occurrence: FR)
  Receive Date: 20140127
  Receipt Date: 20140402
  Transmission Date: 20141212
  Serious: Yes (Other)
  Sender: FDA-Public Use
  Company Number: FR-PFIZER INC-2014019079

PATIENT
  Age: 58 Year
  Sex: Male

DRUGS (6)
  1. ZITHROMAX [Suspect]
     Indication: PYREXIA
     Dosage: 2 DF, DAILY
     Dates: start: 20131109, end: 20131111
  2. ZITHROMAX [Suspect]
     Indication: RESPIRATORY TRACT INFECTION
  3. KEPPRA [Concomitant]
     Indication: EPILEPSY
     Dosage: 500 MG, 2X/DAY
     Route: 048
     Dates: start: 200801
  4. SEROPLEX [Concomitant]
     Indication: DEPRESSION
     Dosage: 10 MG, 1X/DAY
     Route: 048
     Dates: start: 201210
  5. LYSANXIA [Concomitant]
     Indication: ANXIETY
     Dosage: 10 MG, 3X/DAY
     Route: 048
     Dates: start: 2012
  6. NOCTAMID [Concomitant]
     Indication: INSOMNIA
     Dosage: 1 MG, 1X/DAY
     Route: 048
     Dates: start: 2012

REACTIONS (1)
  - Generalised tonic-clonic seizure [Recovered/Resolved]
